FAERS Safety Report 24887302 (Version 2)
Quarter: 2025Q1

REPORT INFORMATION
  Report Type: Spontaneous
  Country: US (occurrence: US)
  Receive Date: 20250127
  Receipt Date: 20250312
  Transmission Date: 20250409
  Serious: No
  Sender: LUPIN
  Company Number: US-LUPIN PHARMACEUTICALS INC.-2025-00365

PATIENT
  Age: 73 Year
  Weight: 99.773 kg

DRUGS (1)
  1. MIRABEGRON [Suspect]
     Active Substance: MIRABEGRON
     Indication: Incontinence
     Dosage: 1 DOSAGE FORM, QD

REACTIONS (3)
  - Pollakiuria [Unknown]
  - Product dose omission issue [Unknown]
  - Product packaging quantity issue [Unknown]
